FAERS Safety Report 8902915 (Version 8)
Quarter: 2016Q3

REPORT INFORMATION
  Report Type: Spontaneous
  Country: US (occurrence: US)
  Receive Date: 20121112
  Receipt Date: 20160728
  Transmission Date: 20161109
  Serious: Yes (Death, Hospitalization, Disabling, Other)
  Sender: FDA-Public Use
  Company Number: US-009507513-1211USA004403

PATIENT
  Sex: Female

DRUGS (4)
  1. FOSAMAX [Suspect]
     Active Substance: ALENDRONATE SODIUM
     Dosage: 70 MG, QW
     Route: 048
     Dates: start: 200306, end: 2008
  2. ALENDRONATE SODIUM. [Suspect]
     Active Substance: ALENDRONATE SODIUM
     Indication: OSTEOPOROSIS
     Dosage: 70 MG, QW
     Route: 048
     Dates: start: 200805, end: 200808
  3. FOSAMAX [Suspect]
     Active Substance: ALENDRONATE SODIUM
     Indication: OSTEOPOROSIS
     Dosage: 70 MG, UNK
     Route: 048
     Dates: start: 2001, end: 200809
  4. ACTONEL [Suspect]
     Active Substance: RISEDRONATE SODIUM
     Indication: OSTEOPOROSIS
     Dosage: 150 MG, UNK
     Route: 048
     Dates: start: 200809, end: 200812

REACTIONS (42)
  - Chronic kidney disease [Not Recovered/Not Resolved]
  - Palpitations [Unknown]
  - Arteriosclerosis [Unknown]
  - Anaemia of chronic disease [Unknown]
  - Peripheral swelling [Unknown]
  - Hip arthroplasty [Unknown]
  - Cardiac failure congestive [Unknown]
  - Vaginal infection [Unknown]
  - Hyponatraemia [Unknown]
  - Renal failure [Fatal]
  - Renal failure [Unknown]
  - Toxicity to various agents [Unknown]
  - Weight decreased [Unknown]
  - Joint effusion [Unknown]
  - Leukocytosis [Unknown]
  - Urinary incontinence [Unknown]
  - Constipation [Unknown]
  - Dyspnoea [Unknown]
  - Fungal oesophagitis [Unknown]
  - Gastrooesophageal reflux disease [Unknown]
  - Upper-airway cough syndrome [Unknown]
  - Decreased appetite [Unknown]
  - Vitamin D deficiency [Unknown]
  - Intestinal ischaemia [Unknown]
  - Vision blurred [Unknown]
  - Fall [Unknown]
  - International normalised ratio increased [Unknown]
  - Hypertension [Unknown]
  - Gastrooesophageal reflux disease [Unknown]
  - Atrial fibrillation [Unknown]
  - Anaemia postoperative [Unknown]
  - Adverse event [Unknown]
  - Open reduction of fracture [Not Recovered/Not Resolved]
  - Joint arthroplasty [Unknown]
  - Transient ischaemic attack [Unknown]
  - Neuroma [Unknown]
  - Macular degeneration [Unknown]
  - Blood osmolarity decreased [Unknown]
  - Cardiopulmonary failure [Fatal]
  - Femur fracture [Recovering/Resolving]
  - Peptic ulcer [Unknown]
  - Joint swelling [Unknown]

NARRATIVE: CASE EVENT DATE: 200511
